FAERS Safety Report 14825175 (Version 2)
Quarter: 2018Q2

REPORT INFORMATION
  Report Type: Spontaneous
  Country: NL (occurrence: NL)
  Receive Date: 20180430
  Receipt Date: 20180518
  Transmission Date: 20180711
  Serious: Yes (Hospitalization)
  Sender: FDA-Public Use
  Company Number: NL-TEVA-2018-NL-887237

PATIENT
  Age: 47 Year
  Sex: Female
  Weight: 69 kg

DRUGS (6)
  1. OMEPRAZO 40MG [Concomitant]
     Dosage: 40 MILLIGRAM DAILY; 1DD1
  2. NADROPARINE (FRAXIPARINE) (9500IE/ML) WEGWERPSPUIT [Concomitant]
     Dosage: 2.850 IE SUBCUTAAN 1DD
  3. PARACETAMOL TABLET 1.000 MG [Concomitant]
     Dosage: 1000MG IF NECESSARY ORALLY
  4. NAPROXEN. [Suspect]
     Active Substance: NAPROXEN
     Indication: OEDEMA PERIPHERAL
  5. NAPROXEN. [Suspect]
     Active Substance: NAPROXEN
     Indication: PAIN
     Dosage: 2DD 1 TABLET
     Dates: start: 20180131, end: 20180205
  6. GLUCOSE/NATRIUMCHLORIDE 2,5%/0,45% INFUUS [Concomitant]
     Active Substance: DEXTROSE MONOHYDRATE\SODIUM CHLORIDE
     Dosage: 2,000 ML/DAY INTRAVENOUSLY

REACTIONS (1)
  - Gastric ulcer perforation [Recovering/Resolving]

NARRATIVE: CASE EVENT DATE: 20180205
